FAERS Safety Report 20322070 (Version 1)
Quarter: 2022Q1

REPORT INFORMATION
  Report Type: Spontaneous
  Country: US (occurrence: None)
  Receive Date: 20220110
  Receipt Date: 20220110
  Transmission Date: 20220423
  Serious: Yes (Other)
  Sender: FDA-Public Use
  Company Number: None

PATIENT
  Age: 46 Year
  Sex: Male
  Weight: 79 kg

DRUGS (1)
  1. PRIVIGEN [Suspect]
     Active Substance: HUMAN IMMUNOGLOBULIN G
     Indication: Humoral immune defect
     Dates: start: 20190214

REACTIONS (4)
  - Infusion related reaction [None]
  - Pruritus [None]
  - Erythema [None]
  - Palmar erythema [None]

NARRATIVE: CASE EVENT DATE: 20220110
